FAERS Safety Report 25112337 (Version 1)
Quarter: 2025Q1

REPORT INFORMATION
  Report Type: Spontaneous
  Country: US (occurrence: None)
  Receive Date: 20250321
  Receipt Date: 20250321
  Transmission Date: 20250408
  Serious: No
  Sender: FDA-CTU
  Company Number: None

PATIENT
  Age: 0 Year
  Weight: 1.16 kg

DRUGS (5)
  1. ARIPIPRAZOLE [Suspect]
     Active Substance: ARIPIPRAZOLE
     Indication: Cyclothymic disorder
     Dates: start: 20220104
  2. Maternal medication Amphethamine mix XR [Concomitant]
  3. Maternal medication: Methylphenidate [Concomitant]
  4. Maternal medication: Escitalopram [Concomitant]
  5. Maternal medication: Prescription prenatal multivitan [Concomitant]

REACTIONS (6)
  - Premature labour [None]
  - Neonatal respiratory distress syndrome [None]
  - Pyelocaliectasis [None]
  - Haemangioma [None]
  - Plagiocephaly [None]
  - Torticollis [None]

NARRATIVE: CASE EVENT DATE: 20220712
